FAERS Safety Report 7961213-5 (Version None)
Quarter: 2011Q4

REPORT INFORMATION
  Report Type: 
  Country: None (occurrence: None)
  Receive Date: 20111202
  Receipt Date: 20110929
  Transmission Date: 20120403
  Serious: Yes (Death, Hospitalization)
  Sender: FDA-Public Use
  Company Number: HRA-MET20110001

PATIENT
  Age: 50 Year
  Sex: Male

DRUGS (8)
  1. OCTREOTIDE ACETATE [Suspect]
     Indication: BLOOD CORTICOTROPHIN INCREASED
     Dosage: 900 MCG (300 MCG,3 IN 1 D),SUBCUTANEOUS
     Route: 058
  2. CISPLATIN [Concomitant]
  3. ETOPOSIDE [Concomitant]
  4. CAPECITABNIE (CAPECITABINE) [Concomitant]
  5. METYRAPONE (METYRAPONE) [Suspect]
     Indication: PRODUCT USED FOR UNKNOWN INDICATION
     Dosage: 500 MG (250 MG,2 IN 1 D),ORAL
     Route: 048
  6. TEMOZOLAMIDE (TEMOZOLAMIDE) [Concomitant]
  7. CABERGOLINE [Suspect]
     Indication: PRODUCT USED FOR UNKNOWN INDICATION
     Dosage: 0.4286 MG (1.5 MG,2 IN 1 WK)
  8. ROSIGLITAZONE [Concomitant]

REACTIONS (12)
  - CRANIAL NERVE PARALYSIS [None]
  - POST PROCEDURAL COMPLICATION [None]
  - DYSPHAGIA [None]
  - SECONDARY HYPOGONADISM [None]
  - NEUROENDOCRINE TUMOUR [None]
  - SMALL CELL CARCINOMA [None]
  - CUSHING'S SYNDROME [None]
  - METASTASES TO BONE [None]
  - HYPERTENSION [None]
  - METASTASES TO SPINE [None]
  - HYPERGLYCAEMIA [None]
  - PITUITARY TUMOUR [None]
